FAERS Safety Report 9380129 (Version 2)
Quarter: 2013Q3

REPORT INFORMATION
  Report Type: Report from Study
  Country: ES (occurrence: ES)
  Receive Date: 20130702
  Receipt Date: 20130801
  Transmission Date: 20140515
  Serious: Yes (Life-Threatening, Hospitalization)
  Sender: FDA-Public Use
  Company Number: ES-CELGENEUS-144-C4047-13052415

PATIENT
  Age: 60 Year
  Sex: Male
  Weight: 80.8 kg

DRUGS (15)
  1. CC-4047 [Suspect]
     Indication: PLASMA CELL MYELOMA
     Dosage: 4 MILLIGRAM
     Route: 048
     Dates: start: 20130410, end: 20130507
  2. CC-4047 [Suspect]
     Dosage: 4 MILLIGRAM
     Route: 048
     Dates: start: 20130508, end: 20130513
  3. CC-4047 [Suspect]
     Dosage: 4 MILLIGRAM
     Route: 048
     Dates: start: 20130604, end: 20130617
  4. CC-4047 [Suspect]
     Dosage: 4 MILLIGRAM
     Route: 048
     Dates: start: 20130621
  5. DEXAMETHASONE [Suspect]
     Indication: PLASMA CELL MYELOMA
     Route: 065
     Dates: start: 20130410, end: 20130501
  6. DEXAMETHASONE [Suspect]
     Route: 065
     Dates: start: 20130508, end: 20130508
  7. DEXAMETHASONE [Suspect]
     Route: 065
     Dates: start: 20130604, end: 20130611
  8. DEXAMETHASONE [Suspect]
     Route: 065
     Dates: start: 20130621
  9. DULOXETINE [Concomitant]
     Indication: DEPRESSION
     Dosage: 60 MILLIGRAM
     Route: 048
  10. TAMSULOSIN [Concomitant]
     Indication: BENIGN PROSTATIC HYPERPLASIA
     Dosage: .4 MILLIGRAM
     Route: 048
  11. OMEPRAZOLE [Concomitant]
     Indication: PROPHYLAXIS
     Dosage: 20 MILLIGRAM
     Route: 048
  12. NEURONTIN [Concomitant]
     Indication: NEUROPATHY PERIPHERAL
     Dosage: 900 MILLIGRAM
     Route: 048
  13. NEURONTIN [Concomitant]
     Dosage: 900 MILLIGRAM
     Route: 048
  14. ADOLONTA [Concomitant]
     Indication: PAIN
     Dosage: 100 MILLIGRAM
     Route: 048
  15. CALCIO [Concomitant]
     Indication: HYPOCALCAEMIA
     Dosage: 100 MILLIGRAM
     Route: 048

REACTIONS (2)
  - Interstitial lung disease [Recovered/Resolved]
  - Clostridium difficile colitis [Recovered/Resolved]
